FAERS Safety Report 10066848 (Version 2)
Quarter: 2014Q2

REPORT INFORMATION
  Report Type: Spontaneous
  Country: PL (occurrence: PL)
  Receive Date: 20140408
  Receipt Date: 20140415
  Transmission Date: 20141212
  Serious: Yes (Hospitalization)
  Sender: FDA-Public Use
  Company Number: PHHY2014PL042220

PATIENT
  Age: 32 Year
  Sex: Male

DRUGS (2)
  1. CLOZAPINE [Suspect]
     Indication: SCHIZOPHRENIA, PARANOID TYPE
     Dosage: 25 MG, BID
  2. OPIPRAMOL [Suspect]
     Indication: SCHIZOPHRENIA, PARANOID TYPE
     Dosage: 50 MG, BID

REACTIONS (10)
  - Central obesity [Unknown]
  - Hypotension [Unknown]
  - Tachycardia [Unknown]
  - Diabetes mellitus [Unknown]
  - Glycosylated haemoglobin increased [Unknown]
  - Glycosuria [Unknown]
  - Ketonuria [Unknown]
  - Electrolyte imbalance [Unknown]
  - Hypertension [Unknown]
  - Hepatomegaly [Unknown]
